FAERS Safety Report 9820923 (Version 2)
Quarter: 2014Q1

REPORT INFORMATION
  Report Type: Report from Study
  Country: BE (occurrence: BE)
  Receive Date: 20140116
  Receipt Date: 20140116
  Transmission Date: 20141002
  Serious: Yes (Hospitalization)
  Sender: FDA-Public Use
  Company Number: BE-ABBVIE-13P-013-1156161-00

PATIENT
  Sex: Female

DRUGS (6)
  1. HUMIRA [Suspect]
     Indication: RHEUMATOID ARTHRITIS
     Dosage: DISCONTINUED FOR TWO MONTHS THEN RESTARTED AGAIN
  2. HUMIRA [Suspect]
  3. LEDERTREXATE [Concomitant]
     Indication: ARTHRITIS
  4. LEDERTREXATE [Concomitant]
  5. MEDROL [Concomitant]
     Indication: PRODUCT USED FOR UNKNOWN INDICATION
  6. THYROXINE [Concomitant]
     Indication: PRODUCT USED FOR UNKNOWN INDICATION

REACTIONS (8)
  - Myositis [Unknown]
  - Ovarian abscess [Unknown]
  - Peritonitis [Unknown]
  - Abdominal pain [Unknown]
  - Constipation [Unknown]
  - Pelvic infection [Unknown]
  - Rheumatoid arthritis [Unknown]
  - Anti-cyclic citrullinated peptide antibody [Unknown]
